FAERS Safety Report 7758510-5 (Version None)
Quarter: 2011Q3

REPORT INFORMATION
  Report Type: 
  Country: None (occurrence: None)
  Receive Date: 20110914
  Receipt Date: 20110909
  Transmission Date: 20111222
  Serious: Yes (Death)
  Sender: FDA-Public Use
  Company Number: 2010SP055537

PATIENT
  Age: 23 Year
  Sex: Male
  Weight: 63 kg

DRUGS (16)
  1. BETAMETHASONE [Concomitant]
  2. COTRIM [Concomitant]
  3. FAMOTIDINE [Concomitant]
  4. TEMODAL [Suspect]
     Indication: ANAPLASTIC ASTROCYTOMA
     Dosage: 75 MG/M2;QD;PO 150 MG/M2;QD;PO
     Route: 048
     Dates: start: 20090210, end: 20090323
  5. TEMODAL [Suspect]
     Indication: ANAPLASTIC ASTROCYTOMA
     Dosage: 75 MG/M2;QD;PO 150 MG/M2;QD;PO
     Route: 048
     Dates: start: 20090715, end: 20090719
  6. TEMODAL [Suspect]
     Indication: ANAPLASTIC ASTROCYTOMA
     Dosage: 75 MG/M2;QD;PO 150 MG/M2;QD;PO
     Route: 048
     Dates: start: 20090520, end: 20090524
  7. TEMODAL [Suspect]
     Indication: ANAPLASTIC ASTROCYTOMA
     Dosage: 75 MG/M2;QD;PO 150 MG/M2;QD;PO
     Route: 048
     Dates: start: 20090617, end: 20090621
  8. TEMODAL [Suspect]
     Indication: ANAPLASTIC ASTROCYTOMA
     Dosage: 75 MG/M2;QD;PO 150 MG/M2;QD;PO
     Route: 048
     Dates: start: 20090812, end: 20090816
  9. TEMODAL [Suspect]
     Indication: ANAPLASTIC ASTROCYTOMA
     Dosage: 75 MG/M2;QD;PO 150 MG/M2;QD;PO
     Route: 048
     Dates: start: 20090909, end: 20090913
  10. TEMODAL [Suspect]
     Indication: ANAPLASTIC ASTROCYTOMA
     Dosage: 75 MG/M2;QD;PO 150 MG/M2;QD;PO
     Route: 048
     Dates: start: 20090422, end: 20090426
  11. CRAVIT (LEVOFLOXACIN HYDRATE) [Concomitant]
  12. FUNGUARD [Concomitant]
  13. BROACT [Concomitant]
  14. VANCOMYCIN [Concomitant]
  15. MAGNESIUM OXIDE [Concomitant]
  16. BIOFERMIN R (LACTOMIN/AMYLOLYTIC BACILLUS) [Concomitant]

REACTIONS (5)
  - LYMPHOCYTE COUNT DECREASED [None]
  - PNEUMONIA [None]
  - ANAPLASTIC ASTROCYTOMA [None]
  - DISEASE PROGRESSION [None]
  - C-REACTIVE PROTEIN INCREASED [None]
